FAERS Safety Report 8073927-X (Version None)
Quarter: 2012Q1

REPORT INFORMATION
  Report Type: 
  Country: None (occurrence: None)
  Receive Date: 20120126
  Receipt Date: 20120120
  Transmission Date: 20120608
  Serious: Yes (Other)
  Sender: FDA-Public Use
  Company Number: GB-PFIZER INC-2011165466

PATIENT
  Age: 51 Year
  Sex: Female
  Weight: 80 kg

DRUGS (4)
  1. ATENOLOL [Concomitant]
     Indication: PRODUCT USED FOR UNKNOWN INDICATION
  2. RAMIPRIL [Suspect]
     Indication: HYPERTENSION
     Dosage: 10 MG, UNK
     Route: 048
     Dates: start: 20101201, end: 20110712
  3. CICLOSPORIN [Concomitant]
     Indication: PRODUCT USED FOR UNKNOWN INDICATION
  4. BENDROFLUMETHIAZIDE [Concomitant]
     Indication: PRODUCT USED FOR UNKNOWN INDICATION

REACTIONS (7)
  - DYSPNOEA [None]
  - SWOLLEN TONGUE [None]
  - DYSPHAGIA [None]
  - ANGIOEDEMA [None]
  - PHARYNGEAL OEDEMA [None]
  - ANAPHYLACTIC REACTION [None]
  - LOCAL SWELLING [None]
